FAERS Safety Report 17731062 (Version 1)
Quarter: 2020Q2

REPORT INFORMATION
  Report Type: Spontaneous
  Country: FR (occurrence: FR)
  Receive Date: 20200430
  Receipt Date: 20200430
  Transmission Date: 20200714
  Serious: Yes (Hospitalization)
  Sender: FDA-Public Use
  Company Number: FR-TEIKOKU PHARMA USA-TPU2020-00211

PATIENT
  Age: 69 Year
  Sex: Male
  Weight: 102 kg

DRUGS (11)
  1. OMEPRAZOLE. [Concomitant]
     Active Substance: OMEPRAZOLE
  2. LAMALINE (ACETAMINOPHEN\CAFFEINE\OPIUM) [Suspect]
     Active Substance: ACETAMINOPHEN\CAFFEINE\OPIUM
     Indication: ANALGESIC THERAPY
     Dosage: 1-4/DAY
     Route: 048
     Dates: start: 20200309, end: 20200315
  3. INEGY [Concomitant]
     Active Substance: EZETIMIBE\SIMVASTATIN
  4. SERETIDE [Concomitant]
     Active Substance: FLUTICASONE PROPIONATE\SALMETEROL XINAFOATE
  5. VERSATIS [Suspect]
     Active Substance: LIDOCAINE
     Indication: ANALGESIC THERAPY
     Route: 061
     Dates: start: 20200309, end: 20200315
  6. ACUPAN [Suspect]
     Active Substance: NEFOPAM HYDROCHLORIDE
     Indication: ANALGESIC THERAPY
     Route: 048
     Dates: start: 20200305, end: 20200309
  7. KARDEGIC [Concomitant]
     Active Substance: ASPIRIN DL-LYSINE
  8. COVERAM [Concomitant]
     Active Substance: AMLODIPINE\PERINDOPRIL
  9. VENTOLINE [Concomitant]
     Active Substance: ALBUTEROL
  10. DOLIPRANE [Concomitant]
     Active Substance: ACETAMINOPHEN
  11. SPIRIVA [Concomitant]
     Active Substance: TIOTROPIUM BROMIDE MONOHYDRATE

REACTIONS (1)
  - Urinary retention [Recovered/Resolved with Sequelae]

NARRATIVE: CASE EVENT DATE: 20200315
